FAERS Safety Report 8405167-6 (Version None)
Quarter: 2012Q2

REPORT INFORMATION
  Report Type: 
  Country: None (occurrence: None)
  Receive Date: 20120602
  Receipt Date: 20120518
  Transmission Date: 20120825
  Serious: No
  Sender: FDA-Public Use
  Company Number: US-BAYER-2012-052342

PATIENT
  Age: 73 Year
  Sex: Female
  Weight: 127 kg

DRUGS (4)
  1. LORTAB [Concomitant]
  2. ALEVE (CAPLET) [Suspect]
     Dosage: UNK
     Route: 048
     Dates: start: 20120401
  3. ALEVE (CAPLET) [Suspect]
     Dosage: 3 DF, UNK
     Route: 048
     Dates: start: 20120517
  4. ALEVE (CAPLET) [Suspect]
     Dosage: UNK
     Route: 048
     Dates: start: 20110101

REACTIONS (1)
  - DRUG INEFFECTIVE [None]
